FAERS Safety Report 17206078 (Version 2)
Quarter: 2020Q1

REPORT INFORMATION
  Report Type: Spontaneous
  Country: US (occurrence: US)
  Receive Date: 20191227
  Receipt Date: 20200128
  Transmission Date: 20200409
  Serious: Yes (Hospitalization)
  Sender: FDA-Public Use
  Company Number: US-ASTRAZENECA-2019SF84068

PATIENT
  Age: 223 Day
  Sex: Female
  Weight: 6.3 kg

DRUGS (4)
  1. SYNAGIS [Suspect]
     Active Substance: PALIVIZUMAB
     Indication: PREMATURE BABY
     Route: 030
     Dates: start: 20191115
  2. POLY-VI-SOL [Concomitant]
     Active Substance: VITAMINS
     Dosage: 750-35-400 UNIT-MG-UNIT/ML
     Route: 048
  3. PROVENTIL [Concomitant]
     Active Substance: ALBUTEROL
     Dosage: TAKE 3 ML BY NEBULIZATION EVERY FOUR HOURS AS NEEDED
  4. PULMICORT TURBUHALER [Concomitant]
     Active Substance: BUDESONIDE
     Dosage: TAKE 2 ML BY NEBULIZATION EVERY 12 HOURS

REACTIONS (4)
  - Enterovirus infection [Recovered/Resolved]
  - Parainfluenzae virus infection [Recovered/Resolved]
  - Upper respiratory tract infection [Unknown]
  - Rhinovirus infection [Recovered/Resolved]

NARRATIVE: CASE EVENT DATE: 20191120
